FAERS Safety Report 9074554 (Version 1)
Quarter: 2013Q1

REPORT INFORMATION
  Report Type: Report from Study
  Country: US (occurrence: US)
  Receive Date: 20130129
  Receipt Date: 20130129
  Transmission Date: 20140127
  Serious: Yes (Other)
  Sender: FDA-Public Use
  Company Number: US-ABBOTT-12P-163-0928786-00

PATIENT
  Age: 58 Year
  Sex: Male
  Weight: 128.03 kg

DRUGS (7)
  1. HUMIRA 40 MG/0.8 ML PEN [Suspect]
     Indication: PSORIASIS
     Route: 058
     Dates: start: 201109, end: 20120405
  2. HUMIRA 40 MG/0.8 ML PEN [Suspect]
     Indication: PSORIATIC ARTHROPATHY
  3. INDOMETHACIN [Concomitant]
     Indication: PSORIATIC ARTHROPATHY
  4. METOPROLOL [Concomitant]
     Indication: BLOOD PRESSURE
  5. METFORMIN [Concomitant]
     Indication: DIABETES MELLITUS
  6. DOXAZOSIN [Concomitant]
     Indication: PROSTATOMEGALY
  7. PRAVASTATIN [Concomitant]
     Indication: BLOOD CHOLESTEROL

REACTIONS (5)
  - Cellulitis [Unknown]
  - Local swelling [Recovering/Resolving]
  - Arthralgia [Recovered/Resolved]
  - Rash macular [Recovering/Resolving]
  - Secretion discharge [Not Recovered/Not Resolved]
